FAERS Safety Report 7243534-7 (Version None)
Quarter: 2011Q1

REPORT INFORMATION
  Report Type: 
  Country: None (occurrence: None)
  Receive Date: 20110125
  Receipt Date: 20110118
  Transmission Date: 20110831
  Serious: Yes (Hospitalization)
  Sender: FDA-Public Use
  Company Number: US-US-EMD SERONO, INC.-231535J10USA

PATIENT
  Sex: Female
  Weight: 75 kg

DRUGS (3)
  1. REBIF [Suspect]
     Indication: MULTIPLE SCLEROSIS
     Route: 058
     Dates: start: 20080716
  2. CYTOXAN [Concomitant]
     Indication: MULTIPLE SCLEROSIS
     Dates: end: 20100701
  3. DIOVAN [Concomitant]
     Indication: HYPERTENSION

REACTIONS (4)
  - TIBIA FRACTURE [None]
  - FALL [None]
  - FIBULA FRACTURE [None]
  - BLOOD CHOLESTEROL INCREASED [None]
